FAERS Safety Report 4889885-2 (Version None)
Quarter: 2006Q1

REPORT INFORMATION
  Report Type: 
  Country: None (occurrence: None)
  Receive Date: 20060124
  Receipt Date: 20051005
  Transmission Date: 20060701
  Serious: Yes (Death, Hospitalization, Other)
  Sender: FDA-Public Use
  Company Number: US-MERCK-0510USA03449

PATIENT
  Age: 69 Year
  Sex: Female
  Weight: 77 kg

DRUGS (3)
  1. VIOXX [Suspect]
     Indication: ARTHRITIS
     Route: 048
     Dates: start: 20030301, end: 20030701
  2. ZOLOFT [Concomitant]
     Route: 065
  3. AMBIEN [Concomitant]
     Route: 065

REACTIONS (7)
  - ADVERSE EVENT [None]
  - CARDIOVASCULAR DISORDER [None]
  - DEATH [None]
  - DEHYDRATION [None]
  - INFECTION [None]
  - ISCHAEMIC STROKE [None]
  - RESPIRATORY FAILURE [None]
